FAERS Safety Report 7818197-X (Version None)
Quarter: 2011Q4

REPORT INFORMATION
  Report Type: 
  Country: None (occurrence: None)
  Receive Date: 20111017
  Receipt Date: 20111013
  Transmission Date: 20120403
  Serious: No
  Sender: FDA-Public Use
  Company Number: CHPA2011DE14226

PATIENT
  Age: 68 Year
  Sex: Male

DRUGS (1)
  1. LAMISIL [Suspect]
     Indication: ANTIFUNGAL PROPHYLAXIS
     Dosage: UNK, UNK
     Route: 061
     Dates: start: 20010101

REACTIONS (3)
  - INCORRECT DRUG ADMINISTRATION DURATION [None]
  - NO ADVERSE EVENT [None]
  - OFF LABEL USE [None]
